FAERS Safety Report 9606464 (Version 3)
Quarter: 2014Q2

REPORT INFORMATION
  Report Type: Spontaneous
  Country: US (occurrence: US)
  Receive Date: 20131008
  Receipt Date: 20140519
  Transmission Date: 20141212
  Serious: No
  Sender: FDA-Public Use
  Company Number: US-AMGEN-USASP2013054108

PATIENT
  Age: 83 Year
  Sex: Female

DRUGS (2)
  1. PROLIA [Suspect]
     Indication: PRODUCT USED FOR UNKNOWN INDICATION
     Dosage: UNK
     Route: 065
     Dates: start: 201302
  2. MELOXICAM [Concomitant]
     Indication: PAIN IN EXTREMITY
     Dosage: 7.5 MG, QD

REACTIONS (6)
  - Hearing impaired [Not Recovered/Not Resolved]
  - Mobility decreased [Unknown]
  - Back disorder [Unknown]
  - Sleep disorder due to general medical condition, insomnia type [Unknown]
  - Pain in extremity [Unknown]
  - Drug ineffective [Unknown]
